FAERS Safety Report 5749255-1 (Version None)
Quarter: 2008Q2

REPORT INFORMATION
  Report Type: 
  Country: None (occurrence: None)
  Receive Date: 20080527
  Receipt Date: 20080516
  Transmission Date: 20081010
  Serious: Yes (Hospitalization, Other)
  Sender: FDA-Public Use
  Company Number: US-JNJFOC-20071204391

PATIENT
  Sex: Female
  Weight: 83.92 kg

DRUGS (9)
  1. REMICADE [Suspect]
     Indication: RHEUMATOID ARTHRITIS
     Route: 042
  2. CYMBALTA [Concomitant]
  3. ULTRAM [Concomitant]
  4. HYDROCHLOROTHIAZIDE [Concomitant]
  5. ATENOLOL [Concomitant]
  6. ACIPHEX [Concomitant]
  7. LYRICA [Concomitant]
  8. PREDNISONE TAB [Concomitant]
  9. ARAVA [Concomitant]

REACTIONS (5)
  - ATRIAL FIBRILLATION [None]
  - HYPOTENSION [None]
  - MENINGITIS VIRAL [None]
  - PNEUMONIA VIRAL [None]
  - SEPSIS [None]
